FAERS Safety Report 17186151 (Version 1)
Quarter: 2019Q4

REPORT INFORMATION
  Report Type: Spontaneous
  Country: JP (occurrence: JP)
  Receive Date: 20191220
  Receipt Date: 20191220
  Transmission Date: 20200122
  Serious: Yes (Other)
  Sender: FDA-Public Use
  Company Number: NVSJ2019JP004872

PATIENT
  Age: 78 Year
  Sex: Female

DRUGS (1)
  1. COSENTYX [Suspect]
     Active Substance: SECUKINUMAB
     Indication: PSORIATIC ARTHROPATHY
     Dosage: 300 MG,UNKNOWN
     Route: 058
     Dates: start: 20190814, end: 20191016

REACTIONS (2)
  - Diverticulitis [Not Recovered/Not Resolved]
  - Abdominal pain lower [Unknown]

NARRATIVE: CASE EVENT DATE: 20191111
